FAERS Safety Report 7392004-4 (Version None)
Quarter: 2011Q2

REPORT INFORMATION
  Report Type: 
  Country: None (occurrence: None)
  Receive Date: 20110404
  Receipt Date: 20110330
  Transmission Date: 20111010
  Serious: Yes (Hospitalization)
  Sender: FDA-Public Use
  Company Number: US-PFIZER INC-2009263048

PATIENT
  Sex: Female
  Weight: 57.6 kg

DRUGS (6)
  1. SYNTHROID [Concomitant]
  2. TIKOSYN [Suspect]
     Dosage: 0.125 MG, 1X/DAY
     Dates: start: 20090809
  3. COZAAR [Concomitant]
  4. TIKOSYN [Suspect]
     Dosage: 375 UG, 2X/DAY
  5. ACETYLSALICYLIC ACID [Concomitant]
  6. TIKOSYN [Suspect]
     Indication: ATRIAL FIBRILLATION
     Dosage: 0.25 MG, DAILY
     Dates: start: 20090501

REACTIONS (5)
  - ATRIAL FIBRILLATION [None]
  - CARDIAC DISORDER [None]
  - ABNORMAL BEHAVIOUR [None]
  - THINKING ABNORMAL [None]
  - HYPERSOMNIA [None]
